FAERS Safety Report 18218145 (Version 1)
Quarter: 2020Q3

REPORT INFORMATION
  Report Type: Spontaneous
  Country: FR (occurrence: FR)
  Receive Date: 20200901
  Receipt Date: 20200901
  Transmission Date: 20201103
  Serious: Yes (Other)
  Sender: FDA-Public Use
  Company Number: FR-MYLANLABS-2020M1074545

PATIENT
  Age: 47 Year
  Sex: Female
  Weight: 42 kg

DRUGS (8)
  1. IPRATROPIUM ARROW [Suspect]
     Active Substance: IPRATROPIUM
     Indication: BRONCHOSPASM
     Dosage: 2 DOSAGE FORM, QD
     Route: 055
     Dates: start: 20200708, end: 20200708
  2. ERYTHROMYCINE /00020905/ [Suspect]
     Active Substance: ERYTHROMYCIN LACTOBIONATE
     Indication: INFECTION
     Dosage: 300 MILLIGRAM, QD
     Route: 042
     Dates: start: 20200707
  3. HYDROXYZINE RENAUDIN [Suspect]
     Active Substance: HYDROXYZINE HYDROCHLORIDE
     Indication: INSOMNIA
     Dosage: SI BESOIN
     Route: 042
     Dates: start: 20200707, end: 20200708
  4. LOVENOX [Suspect]
     Active Substance: ENOXAPARIN SODIUM
     Indication: THROMBOSIS PROPHYLAXIS
     Dosage: 4000 INTERNATIONAL UNIT, QD
     Route: 058
     Dates: start: 20200708
  5. ZOPICLONE ARROW [Suspect]
     Active Substance: ZOPICLONE
     Indication: INSOMNIA
     Dosage: 7.5 MILLIGRAM, QD
     Route: 048
     Dates: start: 20200708, end: 20200708
  6. DITROPAN [Suspect]
     Active Substance: OXYBUTYNIN CHLORIDE
     Indication: MUSCLE SPASMS
     Dosage: SI BESOIN
     Route: 048
     Dates: start: 20200708, end: 20200708
  7. LEVOTHYROX [Concomitant]
     Active Substance: LEVOTHYROXINE
     Indication: PRODUCT USED FOR UNKNOWN INDICATION
     Dosage: UNK
  8. SALBUTAMOL MYLAN [Suspect]
     Active Substance: ALBUTEROL
     Indication: BRONCHOSPASM
     Dosage: 2 DOSAGE FORM, QD
     Route: 055
     Dates: start: 20200708, end: 20200708

REACTIONS (3)
  - Hallucination [Recovered/Resolved]
  - Confusional state [Recovered/Resolved]
  - Insomnia [Recovered/Resolved]

NARRATIVE: CASE EVENT DATE: 20200708
